FAERS Safety Report 20652118 (Version 1)
Quarter: 2022Q1

REPORT INFORMATION
  Report Type: Report from Study
  Country: MX (occurrence: MX)
  Receive Date: 20220330
  Receipt Date: 20220330
  Transmission Date: 20220423
  Serious: Yes (Other)
  Sender: FDA-Public Use
  Company Number: MX-NOVARTISPH-NVSC2022MX070716

PATIENT
  Sex: Male

DRUGS (1)
  1. TASIGNA [Suspect]
     Active Substance: NILOTINIB
     Indication: Chronic myeloid leukaemia
     Dosage: UNK
     Route: 048

REACTIONS (9)
  - Retinal detachment [Unknown]
  - Visual impairment [Unknown]
  - Alcoholism [Unknown]
  - Diabetes mellitus [Unknown]
  - COVID-19 [Unknown]
  - Dengue fever [Unknown]
  - Pain [Unknown]
  - Musculoskeletal chest pain [Unknown]
  - Fatigue [Unknown]
